FAERS Safety Report 7002213-1 (Version None)
Quarter: 2010Q3

REPORT INFORMATION
  Report Type: 
  Country: None (occurrence: None)
  Receive Date: 20100920
  Receipt Date: 20100723
  Transmission Date: 20110219
  Serious: No
  Sender: FDA-Public Use
  Company Number: US-ASTRAZENECA-2009UW17560

PATIENT
  Age: 30 Year
  Sex: Female
  Weight: 88.5 kg

DRUGS (11)
  1. SEROQUEL [Suspect]
     Indication: BIPOLAR DISORDER
     Dosage: 25 TO 400 MG
     Route: 048
     Dates: start: 20060306
  2. SEROQUEL [Suspect]
     Indication: MANIA
     Dosage: 25 TO 400 MG
     Route: 048
     Dates: start: 20060306
  3. SEROQUEL [Suspect]
     Route: 048
     Dates: start: 20060101, end: 20080101
  4. SEROQUEL [Suspect]
     Route: 048
     Dates: start: 20060101, end: 20080101
  5. IMITREX [Concomitant]
     Indication: MIGRAINE
     Dosage: 100 MG 1 PO PRN
     Route: 048
     Dates: start: 20060913
  6. IMITREX [Concomitant]
     Indication: HEADACHE
     Dosage: 100 MG 1 PO PRN
     Route: 048
     Dates: start: 20060913
  7. EFFEXOR XR [Concomitant]
     Dates: start: 20060913
  8. CLARINEX D [Concomitant]
     Indication: NASOPHARYNGITIS
     Dates: start: 20060913
  9. CLARINEX D [Concomitant]
     Indication: HYPERSENSITIVITY
     Dates: start: 20060913
  10. INDOCIN [Concomitant]
     Dates: start: 20060306
  11. CELEBREX [Concomitant]
     Dates: start: 20060306

REACTIONS (4)
  - OBESITY [None]
  - SOMNOLENCE [None]
  - TYPE 2 DIABETES MELLITUS [None]
  - WEIGHT INCREASED [None]
